FAERS Safety Report 6639264-2 (Version None)
Quarter: 2010Q1

REPORT INFORMATION
  Report Type: 
  Country: None (occurrence: None)
  Receive Date: 20100315
  Receipt Date: 20100301
  Transmission Date: 20100710
  Serious: Yes (Other)
  Sender: FDA-Public Use
  Company Number: 231556J10USA

PATIENT
  Age: 28 Year
  Sex: Female
  Weight: 45 kg

DRUGS (2)
  1. REBIF [Suspect]
     Indication: MULTIPLE SCLEROSIS
     Dosage: 44 MCG, 3 IN 1 WEEKS, SUBCUTANEOUS
     Route: 058
     Dates: start: 20080212
  2. NAPROXEN SODIUM (NAPROXEN) [Concomitant]

REACTIONS (3)
  - DIABETIC KETOACIDOSIS [None]
  - HYPOTHYROIDISM [None]
  - TYPE 1 DIABETES MELLITUS [None]
